FAERS Safety Report 7667985-1 (Version None)
Quarter: 2011Q3

REPORT INFORMATION
  Report Type: 
  Country: None (occurrence: None)
  Receive Date: 20110808
  Receipt Date: 20110802
  Transmission Date: 20111222
  Serious: Yes (Other)
  Sender: FDA-Public Use
  Company Number: PT-AMGEN-PRTSP2011035487

PATIENT
  Age: 41 Year
  Sex: Female
  Weight: 78 kg

DRUGS (3)
  1. TRAMADOL HYDROCHLORIDE AND ACETAMINOPHEN [Concomitant]
     Indication: PAIN
     Dosage: 37.5 MG + 325 MG DAILY
     Route: 048
  2. ENBREL [Suspect]
     Indication: RHEUMATOID ARTHRITIS
     Dosage: 50 MG, WEEKLY
     Route: 058
     Dates: start: 20110511
  3. METHOTREXATE [Concomitant]
     Indication: RHEUMATOID ARTHRITIS
     Dosage: 24 MG, WEEKLY
     Route: 048
     Dates: start: 20110611

REACTIONS (4)
  - JOINT STIFFNESS [None]
  - HYPERSENSITIVITY [None]
  - FACE OEDEMA [None]
  - GENERALISED OEDEMA [None]
